FAERS Safety Report 9894567 (Version 2)
Quarter: 2014Q1

REPORT INFORMATION
  Report Type: Spontaneous
  Country: US (occurrence: GB)
  Receive Date: 20140213
  Receipt Date: 20140213
  Transmission Date: 20141002
  Serious: Yes (Other)
  Sender: FDA-Public Use
  Company Number: US-PFIZER INC-K200400114

PATIENT
  Age: 33 Year
  Sex: Female

DRUGS (2)
  1. OVRANETTE [Suspect]
     Indication: CONTRACEPTION
     Dosage: (0.15 MG LEVON/ .03MG ESTRADIOL) 11DF 1X/DAY
     Route: 048
     Dates: start: 19990127
  2. EFEXOR XL [Interacting]
     Dosage: UNK,1X/DAY
     Route: 065
     Dates: start: 20020328

REACTIONS (3)
  - Drug interaction [Unknown]
  - Drug ineffective [Unknown]
  - Unintended pregnancy [Unknown]
